FAERS Safety Report 20695247 (Version 1)
Quarter: 2022Q2

REPORT INFORMATION
  Report Type: Spontaneous
  Country: GR (occurrence: GR)
  Receive Date: 20220411
  Receipt Date: 20220411
  Transmission Date: 20220720
  Serious: Yes (Hospitalization, Disabling, Other)
  Sender: FDA-Public Use
  Company Number: GR-002147023-NVSC2019GR071064

PATIENT
  Sex: Male

DRUGS (8)
  1. DARUNAVIR [Interacting]
     Active Substance: DARUNAVIR
     Indication: HIV infection CDC category C
     Dosage: UNK
     Route: 048
  2. RITONAVIR [Interacting]
     Active Substance: RITONAVIR
     Indication: HIV infection
     Route: 048
  3. EMTRICITABINE\TENOFOVIR DISOPROXIL FUMARATE [Suspect]
     Active Substance: EMTRICITABINE\TENOFOVIR DISOPROXIL FUMARATE
     Indication: HIV infection
     Route: 065
  4. BUDESONIDE [Interacting]
     Active Substance: BUDESONIDE
     Indication: Cough
     Route: 055
  5. BUDESONIDE [Interacting]
     Active Substance: BUDESONIDE
     Indication: Dyspnoea
  6. NORVIR [Interacting]
     Active Substance: RITONAVIR
     Indication: HIV infection CDC category C
     Route: 048
  7. BUDESONIDE [Suspect]
     Active Substance: BUDESONIDE
     Indication: Emphysema
     Route: 055
  8. HYDROCORTISONE [Concomitant]
     Active Substance: HYDROCORTISONE
     Indication: Antiviral treatment
     Route: 065

REACTIONS (12)
  - Cushing^s syndrome [Recovered/Resolved]
  - Drug interaction [Unknown]
  - Hyperglycaemia [Unknown]
  - Glycosuria [Unknown]
  - Adrenal insufficiency [Recovered/Resolved]
  - Off label use [Unknown]
  - Clubbing [Unknown]
  - Muscular weakness [Recovering/Resolving]
  - Palmar erythema [Unknown]
  - Oedema [Unknown]
  - Resting tremor [Unknown]
  - Gait disturbance [Unknown]
